FAERS Safety Report 12289148 (Version 1)
Quarter: 2016Q2

REPORT INFORMATION
  Report Type: Spontaneous
  Country: US (occurrence: None)
  Receive Date: 20160420
  Receipt Date: 20160420
  Transmission Date: 20160815
  Serious: Yes (Death)
  Sender: FDA-Public Use
  Company Number: None

PATIENT
  Age: 64 Year
  Sex: Male
  Weight: 108.86 kg

DRUGS (15)
  1. AZITHROMYCIN ANHYDROUS. [Suspect]
     Active Substance: AZITHROMYCIN ANHYDROUS
     Indication: UPPER RESPIRATORY TRACT INFECTION
     Route: 048
     Dates: start: 20150918, end: 20150920
  2. MIRTAZAPINE. [Concomitant]
     Active Substance: MIRTAZAPINE
  3. GLIPIZIDEER [Concomitant]
     Active Substance: GLIPIZIDE
  4. LOSARTIN POTASSIUM [Concomitant]
  5. COUGH SYRUO WITH CODEINE [Concomitant]
  6. FLUVOXAMINE MALEATE. [Concomitant]
     Active Substance: FLUVOXAMINE MALEATE
  7. VITAMIN D [Concomitant]
     Active Substance: CHOLECALCIFEROL
  8. ATROVASTATIN [Concomitant]
     Active Substance: ATORVASTATIN CALCIUM
  9. KLONOPIN [Concomitant]
     Active Substance: CLONAZEPAM
  10. ASPIRIN. [Concomitant]
     Active Substance: ASPIRIN
  11. TOPIRAMATE. [Concomitant]
     Active Substance: TOPIRAMATE
  12. GABAPENTIN. [Concomitant]
     Active Substance: GABAPENTIN
  13. METAFORMIN HCL [Concomitant]
  14. LEVOTHYROXINE. [Concomitant]
     Active Substance: LEVOTHYROXINE
  15. INVOKANA [Concomitant]
     Active Substance: CANAGLIFLOZIN

REACTIONS (2)
  - Arrhythmia [None]
  - Pulmonary oedema [None]

NARRATIVE: CASE EVENT DATE: 20150920
